FAERS Safety Report 12914642 (Version 2)
Quarter: 2017Q1

REPORT INFORMATION
  Report Type: Spontaneous
  Country: US (occurrence: US)
  Receive Date: 20161106
  Receipt Date: 20170216
  Transmission Date: 20170428
  Serious: No
  Sender: FDA-Public Use
  Company Number: US-RELYPSA-RLY2016003258

PATIENT
  Age: 69 Year
  Sex: Male

DRUGS (11)
  1. OMEPRAZOLE. [Concomitant]
     Active Substance: OMEPRAZOLE
  2. SODIUM BICARBONATE. [Concomitant]
     Active Substance: SODIUM BICARBONATE
  3. ALLOPURINOL. [Concomitant]
     Active Substance: ALLOPURINOL
  4. VELTASSA [Suspect]
     Active Substance: PATIROMER
     Indication: BLOOD POTASSIUM INCREASED
     Dosage: 8.4 G, QD
     Route: 065
     Dates: start: 2016, end: 201610
  5. DILTIAZEM. [Concomitant]
     Active Substance: DILTIAZEM
  6. TAMSULOSIN [Concomitant]
     Active Substance: TAMSULOSIN
  7. FENOFIBRATE. [Concomitant]
     Active Substance: FENOFIBRATE
  8. SODIUM POLYETHYLENE SULFONATE [Concomitant]
  9. VELTASSA [Suspect]
     Active Substance: PATIROMER
     Dosage: 16.8 G, QD
     Route: 065
     Dates: start: 201610
  10. FLUCONAZOLE. [Concomitant]
     Active Substance: FLUCONAZOLE
  11. TRAMADOL. [Concomitant]
     Active Substance: TRAMADOL

REACTIONS (4)
  - Blood potassium increased [Unknown]
  - Blood magnesium decreased [Not Recovered/Not Resolved]
  - Constipation [Not Recovered/Not Resolved]
  - Abdominal discomfort [Recovered/Resolved]

NARRATIVE: CASE EVENT DATE: 2016
